FAERS Safety Report 9788320 (Version 1)
Quarter: 2013Q4

REPORT INFORMATION
  Report Type: Spontaneous
  Country: FR (occurrence: FR)
  Receive Date: 20131230
  Receipt Date: 20131230
  Transmission Date: 20140711
  Serious: Yes (Other)
  Sender: FDA-Public Use
  Company Number: PHHY2013FR152482

PATIENT
  Sex: Male

DRUGS (3)
  1. AFINITOR [Suspect]
     Indication: BREAST CANCER METASTATIC
     Dosage: 10 MG, QD
  2. AFINITOR [Suspect]
     Dosage: 5 MG, UNK
  3. AROMASIN [Concomitant]

REACTIONS (2)
  - Cell death [Unknown]
  - Asthenia [Unknown]
